FAERS Safety Report 7954697-X (Version None)
Quarter: 2011Q4

REPORT INFORMATION
  Report Type: 
  Country: None (occurrence: None)
  Receive Date: 20111202
  Receipt Date: 20111128
  Transmission Date: 20120403
  Serious: Yes (Life-Threatening, Hospitalization, Disabling, Other)
  Sender: FDA-Public Use
  Company Number: US-BAYER-2011-003503

PATIENT
  Sex: Male

DRUGS (2)
  1. INTERFERON BETA-1B [Suspect]
     Indication: RELAPSING-REMITTING MULTIPLE SCLEROSIS
     Dosage: 8 MIU, QOD
     Dates: start: 20060728, end: 20101201
  2. ANTIBIOTICS [Suspect]
     Indication: INJECTION SITE CELLULITIS
     Dosage: UNK
     Route: 042
     Dates: start: 20101230

REACTIONS (20)
  - INJECTION SITE CELLULITIS [None]
  - WEIGHT DECREASED [None]
  - INJECTION SITE PAIN [None]
  - CHILLS [None]
  - FALL [None]
  - MOBILITY DECREASED [None]
  - ABDOMINAL PAIN [None]
  - INJECTION SITE DISCHARGE [None]
  - CONSTIPATION [None]
  - PYREXIA [None]
  - URINARY RETENTION [None]
  - MULTIPLE SCLEROSIS [None]
  - MUSCULAR WEAKNESS [None]
  - INJURY [None]
  - INFECTION [None]
  - TREMOR [None]
  - GENERAL PHYSICAL HEALTH DETERIORATION [None]
  - MULTI-ORGAN FAILURE [None]
  - ANXIETY [None]
  - PAIN [None]
